FAERS Safety Report 5994351-7 (Version None)
Quarter: 2008Q4

REPORT INFORMATION
  Report Type: 
  Country: None (occurrence: None)
  Receive Date: 20081212
  Receipt Date: 20080905
  Transmission Date: 20090506
  Serious: No
  Sender: FDA-Public Use
  Company Number: US-ABBOTT-08P-163-0474558-00

PATIENT
  Sex: Female

DRUGS (1)
  1. HUMIRA [Suspect]
     Indication: CROHN'S DISEASE
     Dosage: DAY 1
     Dates: start: 20080904

REACTIONS (6)
  - ACCIDENTAL EXPOSURE [None]
  - DIZZINESS [None]
  - EAR DISCOMFORT [None]
  - INJECTION SITE HAEMATOMA [None]
  - LYMPHADENOPATHY [None]
  - NERVOUSNESS [None]
